FAERS Safety Report 9505435 (Version 2)
Quarter: 2014Q1

REPORT INFORMATION
  Report Type: Spontaneous
  Country: US (occurrence: None)
  Receive Date: 20130220
  Receipt Date: 20130517
  Transmission Date: 20141002
  Serious: No
  Sender: FDA-Public Use
  Company Number: 1000041653

PATIENT
  Age: 31 Year
  Sex: Female

DRUGS (6)
  1. VIIBRYD [Suspect]
     Indication: DEPRESSION
     Dosage: 10 MG (10 MG, 1 IN 1 D), ORAL
     Route: 048
     Dates: start: 20121114, end: 20121120
  2. VIIBRYD [Suspect]
     Indication: DEPRESSION
     Dosage: 20 MG (20 MG, 1 IN 1 D), ORAL
     Route: 048
     Dates: start: 20121121, end: 20130109
  3. YASMIN (DEOSPIRENONE W/ETHINYLESTRADIOL) (DROSPIRENONE W/ETHINYLESTRADIOL) [Concomitant]
  4. ULTRAM (TRAMADOL HYDROCHLORIDE) (TRAMADOL HYDROCHLORIDE) [Concomitant]
  5. MAXALT (RIZATRIPTAN) (RIZATRIPTAN) [Concomitant]
  6. TOPAMAX (TOPORAMATE) (TOPIRAMATE) [Concomitant]

REACTIONS (1)
  - Pain [None]
